FAERS Safety Report 7397546-3 (Version None)
Quarter: 2011Q2

REPORT INFORMATION
  Report Type: 
  Country: None (occurrence: None)
  Receive Date: 20110406
  Receipt Date: 20100304
  Transmission Date: 20111010
  Serious: Yes (Death, Hospitalization, Other)
  Sender: FDA-Public Use
  Company Number: US-BAYER-201015766NA

PATIENT
  Sex: Male
  Weight: 83 kg

DRUGS (41)
  1. FELODIPINE [Concomitant]
     Dosage: 5 MG, BID
     Route: 048
     Dates: end: 20070301
  2. PHENYLEPHRINE HCL [Concomitant]
     Dosage: 2700 MG, UNK
     Dates: start: 20070305
  3. SUCCINYLCHOLINE CHLORIDE [Concomitant]
     Dosage: UNK
     Dates: start: 20070305
  4. ACETYLSALICYLIC ACID SRT [Concomitant]
     Dosage: 81 MG, QD
     Route: 048
  5. DOPAMINE HCL [Concomitant]
     Dosage: UNK
     Dates: start: 20070305
  6. OPTIRAY [IODINE,IOVERSOL] [Concomitant]
     Dosage: 1 ML, UNK
     Dates: start: 20070309
  7. LOVENOX [Concomitant]
     Dosage: 60 MG, BID
     Route: 058
  8. ALLOPURINOL [Concomitant]
     Dosage: 300 MG, QD
     Route: 048
  9. PLAVIX [Concomitant]
     Dosage: 75 MG, QD
     Route: 048
  10. HYDROCHLOROTHIAZIDE [Concomitant]
     Dosage: 25 MG, QD
     Route: 048
     Dates: end: 20070301
  11. RENAGEL [Concomitant]
     Dosage: 800 MG, TID
     Route: 048
  12. LEVAQUIN [Concomitant]
     Dosage: 500 MG, ONCE
     Dates: start: 20070304, end: 20070304
  13. PROPOFOL [Concomitant]
     Dosage: UNK
     Dates: start: 20070305
  14. PHENYLEPHRINE HCL [Concomitant]
     Dosage: 10 MG, UNK
     Dates: start: 20070305
  15. RED BLOOD CELLS [Concomitant]
     Dosage: 1 U, UNK
     Dates: start: 20070313
  16. TRASYLOL [Suspect]
     Indication: CORONARY ARTERY BYPASS
     Dosage: 1 ML, ONCE
     Route: 042
     Dates: start: 20070305, end: 20070305
  17. ATENOLOL [Concomitant]
     Dosage: 50 MG, BID
     Route: 048
  18. MAGNESIUM SULFATE [Concomitant]
     Dosage: 2 G, UNK
     Dates: start: 20070305
  19. LIDOCAINE [Concomitant]
     Dosage: 200 MG, UNK
     Dates: start: 20070305
  20. TRASYLOL [Suspect]
     Dosage: 199 ML, ONCE
     Route: 042
     Dates: start: 20070305, end: 20070305
  21. LEVAQUIN [Concomitant]
     Dosage: 250 MG, Q48HRS
     Dates: start: 20070306
  22. ZEMURON [Concomitant]
     Dosage: 50 MG, UNK
     Dates: start: 20070305
  23. VERSED [Concomitant]
     Dosage: 23 MG, UNK
     Dates: start: 20070305
  24. AMIODARONE HCL [Concomitant]
     Dosage: 300 MG, UNK
     Dates: start: 20070305
  25. ISOFLURANE [Concomitant]
     Dosage: UNK
     Dates: start: 20070305
  26. DIGOXIN [Concomitant]
     Dosage: 0.5 MG, UNK
     Dates: start: 20070305
  27. OPTIRAY [IODINE,IOVERSOL] [Concomitant]
     Dosage: 1 ML, UNK
     Dates: start: 20070309
  28. RED BLOOD CELLS [Concomitant]
     Dosage: 2 U, UNK
     Dates: start: 20070306
  29. ATIVAN [Concomitant]
     Dosage: 2 MG, UNK
     Dates: start: 20070305
  30. DOBUTAMINE HCL [Concomitant]
     Dosage: UNK
     Dates: start: 20070305
  31. HEPARIN [Concomitant]
     Dosage: 66000 U, UNK
     Dates: start: 20070305
  32. SODIUM BICARBONATE [Concomitant]
     Dosage: 100 ML, UNK
     Dates: start: 20070305
  33. COZAAR [Concomitant]
     Dosage: 100 MG, QD
     Route: 048
  34. PAVULON [Concomitant]
     Dosage: 5 MG, UNK
     Dates: start: 20070305
  35. FENTANYL [Concomitant]
     Dosage: 50 MCG, UNK
     Dates: start: 20070305
  36. MANNITOL [Concomitant]
     Dosage: 100 ML, UNK
     Dates: start: 20070305
  37. RED BLOOD CELLS [Concomitant]
     Dosage: 1 U, UNK
     Dates: start: 20070307
  38. TRASYLOL [Suspect]
     Dosage: 50 ML, Q1HR
     Route: 042
     Dates: start: 20070305, end: 20070305
  39. NITROGLYCERIN [Concomitant]
     Dosage: 1 IN, Q6HRS
     Route: 062
  40. ALBUMIN (HUMAN) [Concomitant]
     Dosage: 250 ML, UNK
     Dates: start: 20070305
  41. OPTIRAY [IODINE,IOVERSOL] [Concomitant]
     Dosage: 55 ML, UNK
     Dates: start: 20070302

REACTIONS (13)
  - MULTI-ORGAN FAILURE [None]
  - RENAL IMPAIRMENT [None]
  - RENAL FAILURE [None]
  - ANXIETY [None]
  - DEATH [None]
  - UNEVALUABLE EVENT [None]
  - EMOTIONAL DISTRESS [None]
  - FEAR [None]
  - INJURY [None]
  - RENAL INJURY [None]
  - ANHEDONIA [None]
  - STRESS [None]
  - PAIN [None]
